FAERS Safety Report 18985172 (Version 1)
Quarter: 2021Q1

REPORT INFORMATION
  Report Type: Spontaneous
  Country: US (occurrence: US)
  Receive Date: 20210309
  Receipt Date: 20210309
  Transmission Date: 20210420
  Serious: Yes (Life-Threatening, Hospitalization, Other)
  Sender: FDA-Public Use
  Company Number: US-EPICPHARMA-2020EPC00345

PATIENT
  Age: 17 Year
  Sex: Male

DRUGS (3)
  1. TOPIRAMATE. [Concomitant]
     Active Substance: TOPIRAMATE
     Dosage: 100 MG
     Route: 065
  2. GUANFACINE. [Suspect]
     Active Substance: GUANFACINE
     Indication: ATTENTION DEFICIT HYPERACTIVITY DISORDER
     Dosage: UNK
     Route: 065
  3. GUANFACINE. [Suspect]
     Active Substance: GUANFACINE
     Dosage: 80 MG
     Route: 048

REACTIONS (7)
  - Sinus bradycardia [Recovered/Resolved]
  - Cardiac failure [Recovering/Resolving]
  - Accidental overdose [Recovered/Resolved]
  - Pulmonary oedema [Recovered/Resolved]
  - Nodal rhythm [Recovered/Resolved]
  - Toxicity to various agents [Recovered/Resolved]
  - Bundle branch block right [Recovered/Resolved]
